FAERS Safety Report 8120039-2 (Version None)
Quarter: 2012Q1

REPORT INFORMATION
  Report Type: 
  Country: None (occurrence: None)
  Receive Date: 20120207
  Receipt Date: 20120206
  Transmission Date: 20120608
  Serious: No
  Sender: FDA-Public Use
  Company Number: US-BAYER-2012-012172

PATIENT
  Sex: Female

DRUGS (6)
  1. ZANTAC [Concomitant]
  2. CHANTIX [Concomitant]
     Dosage: 1 U, BID
     Route: 048
  3. CIPROFLOXACIN [Suspect]
  4. FENTANYL CITRATE [Concomitant]
  5. BUSPAR [Concomitant]
  6. PERCOCET [Concomitant]

REACTIONS (1)
  - HYPERSENSITIVITY [None]
